FAERS Safety Report 15757371 (Version 1)
Quarter: 2018Q4

REPORT INFORMATION
  Report Type: Spontaneous
  Country: US (occurrence: US)
  Receive Date: 20181224
  Receipt Date: 20181224
  Transmission Date: 20190205
  Serious: Yes (Other)
  Sender: FDA-Public Use
  Company Number: None

PATIENT
  Age: 34 Year
  Sex: Male

DRUGS (1)
  1. AIMOVIG [Suspect]
     Active Substance: ERENUMAB-AOOE
     Indication: MIGRAINE
     Dosage: ?          OTHER FREQUENCY:ONCE MONTHLY;?
     Route: 058
     Dates: start: 20181112

REACTIONS (5)
  - Injection site reaction [None]
  - Abdominal pain upper [None]
  - Injection site erythema [None]
  - Injection site irritation [None]
  - Wrong technique in product usage process [None]

NARRATIVE: CASE EVENT DATE: 20181112
